FAERS Safety Report 16461652 (Version 1)
Quarter: 2019Q2

REPORT INFORMATION
  Report Type: Spontaneous
  Country: DK (occurrence: DK)
  Receive Date: 20190621
  Receipt Date: 20190621
  Transmission Date: 20190711
  Serious: Yes (Hospitalization)
  Sender: FDA-Public Use
  Company Number: DK-ALEMBIC PHARMACUETICALS LIMITED-2019SCAL000380

PATIENT

DRUGS (2)
  1. PRAMIPEXOLE DIHYDROCHLORIDE. [Suspect]
     Active Substance: PRAMIPEXOLE DIHYDROCHLORIDE
     Indication: PRODUCT USED FOR UNKNOWN INDICATION
     Dosage: 0.7 MILLIGRAM, TID
  2. PROPOFOL. [Concomitant]
     Active Substance: PROPOFOL
     Indication: TRACHEOSTOMY

REACTIONS (5)
  - Drug level increased [Recovered/Resolved]
  - Overdose [Recovered/Resolved]
  - Chorea [Recovered/Resolved]
  - Medication error [Unknown]
  - Stereotypy [Recovered/Resolved]
